FAERS Safety Report 24640383 (Version 2)
Quarter: 2024Q4

REPORT INFORMATION
  Report Type: Report from Study
  Country: US (occurrence: US)
  Receive Date: 20241120
  Receipt Date: 20241226
  Transmission Date: 20250115
  Serious: Yes (Other)
  Sender: SUNOVION
  Company Number: US-SMPA-2024SPA005017

PATIENT

DRUGS (2)
  1. ORGOVYX [Suspect]
     Active Substance: RELUGOLIX
     Indication: Prostate cancer
     Dosage: 360 MG, SINGLE
     Route: 048
     Dates: start: 20241026, end: 20241026
  2. ORGOVYX [Suspect]
     Active Substance: RELUGOLIX
     Dosage: 120 MG, QD
     Route: 048
     Dates: start: 20241027

REACTIONS (4)
  - Lymphoma [Unknown]
  - Metastasis [Unknown]
  - Hot flush [Unknown]
  - Constipation [Recovered/Resolved]
